FAERS Safety Report 15480305 (Version 6)
Quarter: 2022Q1

REPORT INFORMATION
  Report Type: Spontaneous
  Country: IT (occurrence: IT)
  Receive Date: 20181009
  Receipt Date: 20220323
  Transmission Date: 20220424
  Serious: Yes (Life-Threatening, Hospitalization, Other)
  Sender: FDA-Public Use
  Company Number: IT-ALLERGAN-1848073US

PATIENT
  Age: 89 Year
  Sex: Female

DRUGS (1)
  1. ATROPINE SULFATE [Suspect]
     Active Substance: ATROPINE SULFATE
     Indication: Ophthalmological examination
     Dosage: UNK UNK, SINGLE
     Route: 047
     Dates: start: 20180620, end: 20180620

REACTIONS (2)
  - Stress cardiomyopathy [Recovered/Resolved]
  - Microvascular coronary artery disease [Recovered/Resolved]

NARRATIVE: CASE EVENT DATE: 20180620
